FAERS Safety Report 20898947 (Version 1)
Quarter: 2022Q2

REPORT INFORMATION
  Report Type: Spontaneous
  Country: RU (occurrence: None)
  Receive Date: 20220601
  Receipt Date: 20220601
  Transmission Date: 20220721
  Serious: Yes (Other)
  Sender: FDA-Public Use
  Company Number: RU-ROCHE-3103015

PATIENT
  Age: 53 Year
  Sex: Female

DRUGS (4)
  1. ATEZOLIZUMAB [Suspect]
     Active Substance: ATEZOLIZUMAB
     Indication: Lung neoplasm malignant
     Route: 041
     Dates: start: 202104
  2. BEVACIZUMAB [Suspect]
     Active Substance: BEVACIZUMAB
     Indication: Lung neoplasm malignant
     Route: 065
     Dates: start: 202104
  3. PACLITAXEL [Suspect]
     Active Substance: PACLITAXEL
     Indication: Lung neoplasm malignant
     Route: 065
     Dates: start: 202104
  4. CARBOPLATIN [Suspect]
     Active Substance: CARBOPLATIN
     Indication: Lung neoplasm malignant
     Dosage: AUC 5
     Route: 065

REACTIONS (18)
  - Polyneuropathy [Unknown]
  - Metastases to central nervous system [Unknown]
  - Musculoskeletal disorder [Unknown]
  - Epistaxis [Unknown]
  - Chest pain [Unknown]
  - Heart rate irregular [Unknown]
  - Heart rate increased [Unknown]
  - Dry mouth [Unknown]
  - Odynophagia [Unknown]
  - Swollen tongue [Unknown]
  - Unevaluable event [Unknown]
  - Aortic wall hypertrophy [Unknown]
  - Mitral valve thickening [Unknown]
  - Left ventricular hypertrophy [Unknown]
  - Left ventricular dysfunction [Unknown]
  - Blood pressure increased [Unknown]
  - Left atrial dilatation [Unknown]
  - Tricuspid valve thickening [Unknown]

NARRATIVE: CASE EVENT DATE: 20211201
